FAERS Safety Report 8035952-4 (Version None)
Quarter: 2012Q1

REPORT INFORMATION
  Report Type: 
  Country: None (occurrence: None)
  Receive Date: 20120106
  Receipt Date: 20120103
  Transmission Date: 20120608
  Serious: Yes (Hospitalization, Disabling, Other)
  Sender: FDA-Public Use
  Company Number: 2010SP062548

PATIENT
  Age: 27 Year
  Sex: Female
  Weight: 56.6996 kg

DRUGS (1)
  1. NUVARING [Suspect]
     Indication: WEIGHT GAIN POOR
     Dates: start: 20061201, end: 20061220

REACTIONS (24)
  - ECCHYMOSIS [None]
  - CARDIAC DISORDER [None]
  - MYOCARDIAL INFARCTION [None]
  - VENTRICULAR TACHYCARDIA [None]
  - HEART RATE IRREGULAR [None]
  - HEMIPARESIS [None]
  - VENTRICULAR FIBRILLATION [None]
  - MITRAL VALVE INCOMPETENCE [None]
  - PALPITATIONS [None]
  - CONDUCTION DISORDER [None]
  - SYSTOLIC DYSFUNCTION [None]
  - CEREBROVASCULAR ACCIDENT [None]
  - PULMONARY VALVE INCOMPETENCE [None]
  - EMBOLIC STROKE [None]
  - STRESS [None]
  - TRICUSPID VALVE INCOMPETENCE [None]
  - CARDIOMYOPATHY [None]
  - LACUNAR INFARCTION [None]
  - HYPOKINESIA [None]
  - HYPERCOAGULATION [None]
  - TRANSIENT ISCHAEMIC ATTACK [None]
  - DEPRESSION [None]
  - EMBOLISM [None]
  - SLEEP APNOEA SYNDROME [None]
